FAERS Safety Report 7578818-6 (Version None)
Quarter: 2011Q2

REPORT INFORMATION
  Report Type: 
  Country: None (occurrence: None)
  Receive Date: 20110628
  Receipt Date: 20110617
  Transmission Date: 20111010
  Serious: Yes (Hospitalization)
  Sender: FDA-Public Use
  Company Number: US-JNJFOC-20110611328

PATIENT
  Sex: Male
  Weight: 92.08 kg

DRUGS (18)
  1. NEURONTIN [Concomitant]
     Indication: PRODUCT USED FOR UNKNOWN INDICATION
     Route: 048
     Dates: start: 20110413
  2. MARINOL [Concomitant]
     Indication: DECREASED APPETITE
     Route: 048
     Dates: start: 20110131
  3. VITAMIN D W/ CALCIUM [Concomitant]
     Indication: MEDICAL DIET
     Route: 048
     Dates: start: 20091101
  4. INSULIN [Concomitant]
     Route: 058
     Dates: start: 20090813
  5. ABIRATERONE ACETATE [Suspect]
     Indication: PROSTATE CANCER METASTATIC
     Route: 048
     Dates: start: 20110228
  6. PREDNISONE [Suspect]
     Indication: PROSTATE CANCER METASTATIC
     Route: 048
     Dates: start: 20110228
  7. MEGESTROL ACETATE [Concomitant]
     Indication: DECREASED APPETITE
     Route: 048
     Dates: start: 20100101
  8. INSULIN [Concomitant]
     Indication: TYPE 2 DIABETES MELLITUS
     Route: 058
     Dates: start: 20091130
  9. GLUCOPHAGE [Concomitant]
     Indication: TYPE 2 DIABETES MELLITUS
     Route: 048
     Dates: start: 20100420
  10. FISH OIL [Concomitant]
     Indication: MEDICAL DIET
     Route: 048
     Dates: start: 20100801
  11. ABIRATERONE ACETATE [Suspect]
     Route: 048
  12. PREDNISONE [Suspect]
     Route: 048
     Dates: start: 20101207
  13. OXYCONTIN [Concomitant]
     Indication: BACK PAIN
     Route: 048
     Dates: start: 20110131
  14. LORTAB [Concomitant]
     Indication: BACK PAIN
     Dosage: 5/100
     Route: 048
     Dates: start: 20101210
  15. ATENOLOL [Concomitant]
     Indication: HYPERTENSION
     Route: 048
     Dates: start: 20101101
  16. PRILOSEC [Concomitant]
     Indication: GASTROOESOPHAGEAL REFLUX DISEASE
     Route: 048
     Dates: start: 20100201
  17. ASPIRIN [Concomitant]
     Indication: PROPHYLAXIS
     Route: 048
     Dates: start: 20060426
  18. SALSALATE [Concomitant]
     Indication: ARTHRITIS
     Route: 048
     Dates: start: 20101101

REACTIONS (1)
  - VOMITING [None]
